FAERS Safety Report 15516522 (Version 1)
Quarter: 2018Q4

REPORT INFORMATION
  Report Type: Other
  Country: FR (occurrence: FR)
  Receive Date: 20181017
  Receipt Date: 20181017
  Transmission Date: 20190205
  Serious: Yes (Hospitalization)
  Sender: FDA-Public Use
  Company Number: FR-APOTEX-2018AP022663

PATIENT
  Age: 87 Year
  Sex: Male

DRUGS (9)
  1. KARDEGIC [Concomitant]
     Active Substance: ASPIRIN DL-LYSINE
     Dosage: UNK UNK, QD
     Route: 048
  2. PAROXETINE. [Suspect]
     Active Substance: PAROXETINE
     Indication: DEMENTIA ALZHEIMER^S TYPE
     Dosage: 20 MG, QD
     Route: 048
     Dates: end: 201806
  3. KARDEGIC [Concomitant]
     Active Substance: ASPIRIN DL-LYSINE
     Indication: PRODUCT USED FOR UNKNOWN INDICATION
     Dosage: 75 MG, QD
     Route: 048
  4. DONEPEZIL. [Suspect]
     Active Substance: DONEPEZIL
     Indication: DEMENTIA ALZHEIMER^S TYPE
     Dosage: 10 MG, QD
     Route: 048
     Dates: start: 201609, end: 201806
  5. ATORVASTATINE                      /01326101/ [Concomitant]
     Active Substance: ATORVASTATIN
     Indication: PRODUCT USED FOR UNKNOWN INDICATION
     Dosage: 10 MG, QD
     Route: 048
  6. CO RENITEC [Concomitant]
     Active Substance: ENALAPRIL MALEATE\HYDROCHLOROTHIAZIDE
     Dosage: 1 DF, QD
     Route: 048
  7. ATORVASTATINE                      /01326101/ [Concomitant]
     Active Substance: ATORVASTATIN
     Dosage: UNK UNK, QD
     Route: 048
  8. AZARGA [Concomitant]
     Active Substance: BRINZOLAMIDE\TIMOLOL MALEATE
     Indication: PRODUCT USED FOR UNKNOWN INDICATION
     Dosage: 1 GTT, QD
     Route: 047
  9. CO RENITEC [Concomitant]
     Active Substance: ENALAPRIL MALEATE\HYDROCHLOROTHIAZIDE
     Indication: PRODUCT USED FOR UNKNOWN INDICATION
     Dosage: 1 DF, QD
     Route: 048

REACTIONS (3)
  - Cognitive disorder [Recovered/Resolved]
  - Aggression [Recovered/Resolved]
  - Confusional state [Recovered/Resolved]

NARRATIVE: CASE EVENT DATE: 20180629
